FAERS Safety Report 6275434-3 (Version None)
Quarter: 2009Q3

REPORT INFORMATION
  Report Type: 
  Country: None (occurrence: None)
  Receive Date: 20090721
  Receipt Date: 20090713
  Transmission Date: 20100115
  Serious: Yes (Other)
  Sender: FDA-Public Use
  Company Number: BR-JNJFOC-20090705948

PATIENT
  Age: 46 Year
  Sex: Female
  Weight: 58 kg

DRUGS (1)
  1. TYLEX [Suspect]
     Indication: PAIN IN EXTREMITY
     Dosage: PATIENT TOOK ONLY ONE TABLET
     Route: 065

REACTIONS (10)
  - ASTHENIA [None]
  - BLOOD PRESSURE DECREASED [None]
  - CHEST PAIN [None]
  - FALL [None]
  - FEELING COLD [None]
  - HYPERHIDROSIS [None]
  - PARAESTHESIA [None]
  - PARAESTHESIA ORAL [None]
  - TACHYCARDIA [None]
  - VISUAL IMPAIRMENT [None]
